FAERS Safety Report 7233391-7 (Version None)
Quarter: 2011Q1

REPORT INFORMATION
  Report Type: 
  Country: None (occurrence: None)
  Receive Date: 20110119
  Receipt Date: 20110105
  Transmission Date: 20110831
  Serious: Yes (Other)
  Sender: FDA-Public Use
  Company Number: DE-ROCHE-753516

PATIENT
  Age: 63 Year
  Sex: Female

DRUGS (4)
  1. KEPPRA [Interacting]
     Route: 065
     Dates: start: 20060101
  2. HERCEPTIN [Suspect]
     Route: 065
     Dates: start: 20060101, end: 20101101
  3. XELODA [Interacting]
     Route: 065
     Dates: start: 20101101
  4. TYVERB [Interacting]
     Route: 065

REACTIONS (3)
  - EPILEPSY [None]
  - LYMPHANGIOSIS CARCINOMATOSA [None]
  - DRUG INTERACTION [None]
